FAERS Safety Report 18489009 (Version 7)
Quarter: 2022Q3

REPORT INFORMATION
  Report Type: Report from Study
  Country: CH (occurrence: CH)
  Receive Date: 20201110
  Receipt Date: 20220814
  Transmission Date: 20221027
  Serious: Yes (Hospitalization)
  Sender: FDA-Public Use
  Company Number: CH-ABBVIE-20K-151-3644502-00

PATIENT
  Age: 73 Year
  Sex: Female
  Weight: 56 kg

DRUGS (21)
  1. CARBIDOPA\LEVODOPA [Suspect]
     Active Substance: CARBIDOPA\LEVODOPA
     Indication: Parkinson^s disease
     Route: 050
     Dates: start: 20180131, end: 20180303
  2. CARBIDOPA\LEVODOPA [Suspect]
     Active Substance: CARBIDOPA\LEVODOPA
     Dosage: MD: 3 ML, CRD: 4.5 ML/H, CRN: 2.5 ML/H, ED: 1.5 ML, 24 H THERAPY
     Route: 050
     Dates: start: 20180303, end: 20201113
  3. CARBIDOPA\LEVODOPA [Suspect]
     Active Substance: CARBIDOPA\LEVODOPA
     Dosage: MD: 3 ML, CRD: 4.3 ML/H, CRN: 2.2ML/H, ED:1.5 ML, ED BLOCKING TIME: 1 H, LL: LOCK LEVEL 0
     Route: 050
     Dates: start: 20201113, end: 20201123
  4. CARBIDOPA\LEVODOPA [Suspect]
     Active Substance: CARBIDOPA\LEVODOPA
     Dosage: MD:3ML,CRD:4.3ML/H,CRN:2.2ML/H, ED:1.5ML, ED BLOCKING TIME:3H, LL:LOCK LEVEL 0,24H THERAPY
     Route: 050
     Dates: start: 20201123, end: 20210714
  5. CARBIDOPA\LEVODOPA [Suspect]
     Active Substance: CARBIDOPA\LEVODOPA
     Dosage: MD: 4 ML, CRD: 4.3 ML/H, CRN: 1.5 ML/H, ED: 1.5 ML?FREQUENCY TEXT - 24 H THERAPY
     Route: 050
     Dates: start: 20210714
  6. CARBIDOPA\LEVODOPA [Suspect]
     Active Substance: CARBIDOPA\LEVODOPA
     Dosage: MD: 4 ML, CRD: 4.3 ML/H, CRN: 1.5 ML/H, ED: 4.3 ML?FREQUENCY TEXT - 24 H THERAPY
     Route: 050
     Dates: end: 20220218
  7. CARBIDOPA\LEVODOPA [Suspect]
     Active Substance: CARBIDOPA\LEVODOPA
     Dosage: MD: 4 ML, CRD: 4.3 ML/H, CRN: 1.5 ML/H, ED: 1.5 ML?FREQUENCY TEXT - 24 H THERAPY
     Route: 050
     Dates: start: 20220218, end: 2022
  8. CARBIDOPA\LEVODOPA [Suspect]
     Active Substance: CARBIDOPA\LEVODOPA
     Dosage: MD: 5 ML, CRD: 4.5 ML/H, CRN: 2.5 ML/H, ED: 1.0 ML
     Route: 050
     Dates: start: 2022, end: 20220810
  9. CARBIDOPA\LEVODOPA [Suspect]
     Active Substance: CARBIDOPA\LEVODOPA
     Dosage: MD: 5 ML, CRD: 4.5 ML/H, CRN: 2.5 ML/H, ED: 1.0 ML
     Route: 050
     Dates: start: 20220810
  10. PANTOPRAZOLE SODIUM [Concomitant]
     Active Substance: PANTOPRAZOLE SODIUM
     Indication: Product used for unknown indication
     Dosage: DAILY, IN THE EVENING
     Route: 048
     Dates: start: 20180602
  11. ASCORBIC ACID\BIOTIN\CALCIUM PANTOTHENATE\CYANOCOBALAMIN\FOLIC ACID\NI [Concomitant]
     Active Substance: ASCORBIC ACID\BIOTIN\CALCIUM PANTOTHENATE\CYANOCOBALAMIN\FOLIC ACID\NIACINAMIDE\PYRIDOXINE HYDROCHLO
     Indication: Product used for unknown indication
     Dosage: DAILY, IN THE MORNING
     Route: 048
     Dates: start: 20180824
  12. GINKGO [Concomitant]
     Active Substance: GINKGO
     Indication: Product used for unknown indication
     Dosage: DAILY IN THE MORNING
     Route: 048
     Dates: start: 20191021
  13. CHOLECALCIFEROL [Concomitant]
     Active Substance: CHOLECALCIFEROL
     Indication: Product used for unknown indication
     Dosage: DAILY AT NOON
     Route: 048
     Dates: start: 20200324
  14. QUETIAPINE [Concomitant]
     Active Substance: QUETIAPINE
     Indication: Product used for unknown indication
     Dosage: DAILY, AT 10 P.M.
     Route: 048
     Dates: start: 20200501
  15. QUETIAPINE [Concomitant]
     Active Substance: QUETIAPINE
     Dosage: DAILY, AT 10 P.M.
     Route: 048
     Dates: start: 20201111
  16. MIRTAZAPINE [Concomitant]
     Active Substance: MIRTAZAPINE
     Indication: Product used for unknown indication
     Dosage: DAILY, AT 10 P.M.?REMERON (MIRTAZAPINUM)
     Route: 048
     Dates: start: 20200501
  17. TOLPERISONI HYDROCHLORIDUM [Concomitant]
     Indication: Product used for unknown indication
     Dosage: DAILY, IN THE EVENING
     Route: 048
     Dates: start: 20200629
  18. FOLIC ACID [Concomitant]
     Active Substance: FOLIC ACID
     Indication: Product used for unknown indication
     Dosage: DAILY, IN THE MORNING
     Route: 048
     Dates: start: 20201111
  19. ZOLPIDEMI TARTRAS [Concomitant]
     Indication: Product used for unknown indication
     Dosage: DAILY AT 10 P.M.
     Dates: start: 20201111
  20. METAMIZOL [Concomitant]
     Active Substance: METAMIZOLE SODIUM
     Indication: Product used for unknown indication
     Dosage: 4 TIMES DAILY, 2 TABLETS
     Route: 048
     Dates: start: 20201111
  21. SINEMET [Concomitant]
     Active Substance: CARBIDOPA\LEVODOPA
     Indication: Parkinson^s disease
     Dosage: 25/100MG (0.5 TBL)
     Dates: start: 2021

REACTIONS (13)
  - Gastrointestinal disorder [Recovered/Resolved]
  - Abdominal pain [Recovered/Resolved]
  - Device dislocation [Recovered/Resolved]
  - Extra dose administered [Recovered/Resolved]
  - Weight decreased [Recovered/Resolved]
  - Dementia [Not Recovered/Not Resolved]
  - Dyskinesia [Recovering/Resolving]
  - Rehabilitation therapy [Recovered/Resolved]
  - Tremor [Recovering/Resolving]
  - Akinesia [Recovering/Resolving]
  - Aphasia [Not Recovered/Not Resolved]
  - General physical condition abnormal [Recovering/Resolving]
  - Incorrect dose administered [Recovered/Resolved]

NARRATIVE: CASE EVENT DATE: 20201101
